FAERS Safety Report 7921009-7 (Version None)
Quarter: 2011Q4

REPORT INFORMATION
  Report Type: 
  Country: None (occurrence: None)
  Receive Date: 20111117
  Receipt Date: 20111105
  Transmission Date: 20120403
  Serious: Yes (Hospitalization)
  Sender: FDA-Public Use
  Company Number: US-BAYER-2011-055415

PATIENT
  Age: 28 Year
  Sex: Female
  Weight: 72.562 kg

DRUGS (7)
  1. LORTAB [Concomitant]
  2. IBUPROFEN [Concomitant]
  3. NAPROXEN [Concomitant]
  4. YASMIN [Suspect]
     Indication: ACNE
     Dosage: UNK
     Dates: start: 20080101
  5. DROSPIRENONE AND ETHINYL ESTRADIOL [Suspect]
     Indication: ACNE
     Dosage: UNK
     Dates: start: 20080101
  6. SKELAXIN [Concomitant]
     Dosage: 800 MG, UNK
  7. AMITRIPTYLINE HCL [Concomitant]
     Indication: MIGRAINE
     Dosage: 50 MG, UNK
     Dates: start: 20080909

REACTIONS (2)
  - PAIN [None]
  - DEEP VEIN THROMBOSIS [None]
